FAERS Safety Report 22982177 (Version 3)
Quarter: 2024Q2

REPORT INFORMATION
  Report Type: Report from Study
  Country: DE (occurrence: DE)
  Receive Date: 20230926
  Receipt Date: 20240416
  Transmission Date: 20240716
  Serious: Yes (Hospitalization, Other)
  Sender: FDA-Public Use
  Company Number: DE-002147023-NVSC2023DE097312

PATIENT
  Sex: Female

DRUGS (4)
  1. ETANERCEPT [Suspect]
     Active Substance: ETANERCEPT
     Dosage: 50MG/EVERY 7 DAYS
     Route: 065
     Dates: start: 20231205
  2. ETANERCEPT [Suspect]
     Active Substance: ETANERCEPT
     Dosage: 50MG/EVERY 7 DAYS
     Route: 065
     Dates: end: 20231017
  3. ETANERCEPT [Suspect]
     Active Substance: ETANERCEPT
     Indication: Product used for unknown indication
     Dosage: UNK
     Route: 065
  4. ETANERCEPT [Suspect]
     Active Substance: ETANERCEPT
     Dosage: UNK
     Route: 065
     Dates: start: 20230815

REACTIONS (7)
  - Acute kidney injury [Recovered/Resolved]
  - Femoral neck fracture [Recovered/Resolved]
  - Cataract [Recovered/Resolved]
  - Cataract [Recovered/Resolved]
  - Depression [Recovered/Resolved]
  - Hip arthroplasty [Recovered/Resolved]
  - Renal failure [Recovered/Resolved]

NARRATIVE: CASE EVENT DATE: 20221015
